FAERS Safety Report 23866489 (Version 1)
Quarter: 2024Q2

REPORT INFORMATION
  Report Type: Other
  Country: US (occurrence: None)
  Receive Date: 20240517
  Receipt Date: 20240517
  Transmission Date: 20240715
  Serious: Yes (Death, Other)
  Sender: FDA-Public Use
  Company Number: US-ROCHE-3563615

PATIENT

DRUGS (1)
  1. TOCILIZUMAB [Suspect]
     Active Substance: TOCILIZUMAB
     Indication: COVID-19
     Route: 065

REACTIONS (7)
  - Death [Fatal]
  - Off label use [Fatal]
  - Gastrointestinal perforation [Unknown]
  - Hepatotoxicity [Unknown]
  - Haematotoxicity [Unknown]
  - Disease susceptibility [Unknown]
  - Nosocomial infection [Unknown]
